FAERS Safety Report 12200573 (Version 2)
Quarter: 2016Q1

REPORT INFORMATION
  Report Type: Spontaneous
  Country: US (occurrence: US)
  Receive Date: 20160322
  Receipt Date: 20160325
  Transmission Date: 20160526
  Serious: Yes (Death, Hospitalization, Other)
  Sender: FDA-Public Use
  Company Number: US-009507513-1603USA008866

PATIENT
  Sex: Female
  Weight: 90.9 kg

DRUGS (1)
  1. JANUVIA [Suspect]
     Active Substance: SITAGLIPTIN PHOSPHATE
     Indication: TYPE 2 DIABETES MELLITUS
     Dosage: 100 MG, QD
     Route: 048
     Dates: start: 20101023, end: 20120401

REACTIONS (22)
  - Blood potassium increased [Unknown]
  - Osteoarthritis [Unknown]
  - Knee arthroplasty [Unknown]
  - Metastases to the mediastinum [Unknown]
  - Oesophageal mass [Unknown]
  - Gastrointestinal wall thickening [Unknown]
  - Coronary artery disease [Unknown]
  - Hypercholesterolaemia [Unknown]
  - Adrenomegaly [Unknown]
  - Adrenal neoplasm [Unknown]
  - Hypertension [Unknown]
  - Death [Fatal]
  - Metastases to liver [Unknown]
  - Metastases to lymph nodes [Unknown]
  - Gastrointestinal disorder [Unknown]
  - Lymphadenopathy [Unknown]
  - Urinary tract disorder [Unknown]
  - Gastrooesophageal reflux disease [Unknown]
  - Dementia [Unknown]
  - Metastases to central nervous system [Unknown]
  - Pancreatic carcinoma metastatic [Unknown]
  - Hiatus hernia [Unknown]

NARRATIVE: CASE EVENT DATE: 20120104
